FAERS Safety Report 24786349 (Version 1)
Quarter: 2024Q4

REPORT INFORMATION
  Report Type: Spontaneous
  Country: IN (occurrence: None)
  Receive Date: 20241230
  Receipt Date: 20241230
  Transmission Date: 20250114
  Serious: Yes (Other)
  Sender: ENCUBE ETHICALS
  Company Number: IN-Encube-001512

PATIENT
  Age: 65 Year
  Sex: Male

DRUGS (3)
  1. TRIAMCINOLONE ACETONIDE [Suspect]
     Active Substance: TRIAMCINOLONE ACETONIDE
     Indication: Cystoid macular oedema
     Dosage: 0.1ML INJECTION
  2. MOXIFLOXACIN [Concomitant]
     Active Substance: MOXIFLOXACIN
  3. NEPAFENAC [Concomitant]
     Active Substance: NEPAFENAC
     Dosage: EYE DROPS

REACTIONS (2)
  - Pseudoendophthalmitis [Recovered/Resolved]
  - Off label use [Unknown]
